FAERS Safety Report 8992134 (Version 1)
Quarter: 2012Q4

REPORT INFORMATION
  Report Type: 
  Country: DK (occurrence: DK)
  Receive Date: 20121231
  Receipt Date: 20121231
  Transmission Date: 20130627
  Serious: Yes (Other)
  Sender: FDA-Public Use
  Company Number: DK-ROCHE-1173207

PATIENT
  Sex: Male

DRUGS (9)
  1. HERCEPTIN [Suspect]
     Indication: BREAST CANCER
     Route: 065
  2. XELODA [Suspect]
     Indication: BREAST CANCER
     Route: 065
  3. CARBOPLATIN [Suspect]
     Indication: BREAST CANCER
     Route: 065
  4. VINORELBINE [Suspect]
     Indication: BREAST CANCER
     Route: 065
  5. TAXOTERE [Suspect]
     Indication: BREAST CANCER
     Route: 065
  6. TYVERB [Suspect]
     Indication: BREAST CANCER
     Route: 065
  7. GEMCITABINE [Suspect]
     Indication: BREAST CANCER
     Route: 065
  8. ERIBULIN [Suspect]
     Indication: BREAST CANCER
     Route: 065
  9. TAXOL [Suspect]
     Indication: BREAST CANCER
     Route: 065

REACTIONS (1)
  - Disease progression [Unknown]
